FAERS Safety Report 10505121 (Version 1)
Quarter: 2014Q3

REPORT INFORMATION
  Report Type: Spontaneous
  Country: US (occurrence: None)
  Receive Date: 20140926
  Receipt Date: 20140926
  Transmission Date: 20150326
  Serious: Yes (Other)
  Sender: FDA-Public Use
  Company Number: US-MDCO-14-00084

PATIENT
  Age: 83 Year
  Sex: Female

DRUGS (1)
  1. CLEVIPREX [Suspect]
     Active Substance: CLEVIDIPINE
     Indication: MALIGNANT HYPERTENSION
     Dosage: 6 MG/HR (INITIAL) AND 16 MG/ HR (MAX) INFUSION 19.OCT.2013 AT 03:15H - 10:40H  20.OCT.2013
     Dates: start: 20131019

REACTIONS (1)
  - Atrial fibrillation [None]

NARRATIVE: CASE EVENT DATE: 20131020
